FAERS Safety Report 9176636 (Version 2)
Quarter: 2013Q2

REPORT INFORMATION
  Report Type: Spontaneous
  Country: US (occurrence: US)
  Receive Date: 20130321
  Receipt Date: 20130514
  Transmission Date: 20140414
  Serious: Yes (Hospitalization)
  Sender: FDA-Public Use
  Company Number: US-INCYTE CORPORATION-2013IN000508

PATIENT
  Age: 65 Year
  Sex: Female
  Weight: 70.75 kg

DRUGS (3)
  1. JAKAFI [Suspect]
     Indication: MYELOFIBROSIS
     Dosage: 15 MG, BID
     Route: 048
     Dates: start: 20120402
  2. LISINOPRIL [Concomitant]
     Dosage: 40 MG
  3. PREMARIN [Concomitant]
     Dosage: 0.3 MG

REACTIONS (2)
  - Fall [Unknown]
  - Blood count abnormal [Not Recovered/Not Resolved]
